FAERS Safety Report 25749777 (Version 1)
Quarter: 2025Q3

REPORT INFORMATION
  Report Type: Report from Study
  Country: US (occurrence: US)
  Receive Date: 20250902
  Receipt Date: 20250902
  Transmission Date: 20251021
  Serious: No
  Sender: SUNOVION
  Company Number: US-SUMITOMO PHARMA SWITZERLAND GMBH-2025SPA010815

PATIENT
  Age: 70 Year
  Sex: Male

DRUGS (14)
  1. ORGOVYX [Suspect]
     Active Substance: RELUGOLIX
     Indication: Prostate cancer
     Route: 048
  2. ORGOVYX [Suspect]
     Active Substance: RELUGOLIX
     Route: 048
  3. GEMTESA [Suspect]
     Active Substance: VIBEGRON
     Indication: Product used for unknown indication
     Route: 048
  4. KEPPRA [Concomitant]
     Active Substance: LEVETIRACETAM
  5. DONEPEZIL [Concomitant]
     Active Substance: DONEPEZIL
  6. DEPAKOTE [Concomitant]
     Active Substance: DIVALPROEX SODIUM
  7. CITALOPRAM [Concomitant]
     Active Substance: CITALOPRAM
  8. PRILOSEC [Concomitant]
     Active Substance: OMEPRAZOLE MAGNESIUM
  9. TYLENOL [Concomitant]
     Active Substance: ACETAMINOPHEN
  10. VOLTAREN [Concomitant]
     Active Substance: DICLOFENAC SODIUM
  11. Dulcolax [Concomitant]
  12. B12 [Concomitant]
  13. CELEXA [Concomitant]
     Active Substance: CITALOPRAM HYDROBROMIDE
  14. GAS-X [Concomitant]
     Active Substance: DIMETHICONE

REACTIONS (2)
  - Fatigue [Unknown]
  - Product use complaint [Unknown]
